FAERS Safety Report 14606051 (Version 1)
Quarter: 2018Q1

REPORT INFORMATION
  Report Type: Spontaneous
  Country: NG (occurrence: NG)
  Receive Date: 20180307
  Receipt Date: 20180307
  Transmission Date: 20180509
  Serious: Yes (Other)
  Sender: FDA-Public Use
  Company Number: NG-SUN PHARMACEUTICAL INDUSTRIES LTD-2018RR-165292

PATIENT
  Age: 41 Year
  Sex: Female

DRUGS (7)
  1. PENTAZIN (UNSPECIFIED INGREDIENT) [Suspect]
     Active Substance: UNSPECIFIED INGREDIENT
     Indication: BACK PAIN
     Dosage: UNK
     Route: 065
  2. TEGRETOL [Suspect]
     Active Substance: CARBAMAZEPINE
     Indication: BACK PAIN
     Dosage: UNK
     Route: 065
  3. ARTANE [Suspect]
     Active Substance: TRIHEXYPHENIDYL HYDROCHLORIDE
     Indication: BACK PAIN
     Dosage: UNK
     Route: 065
  4. DIAZEPAM. [Suspect]
     Active Substance: DIAZEPAM
     Indication: BACK PAIN
     Dosage: UNK
     Route: 065
  5. MOGADON [Suspect]
     Active Substance: NITRAZEPAM
     Indication: BACK PAIN
     Dosage: UNK
     Route: 065
  6. PIRITON [Suspect]
     Active Substance: CHLORPHENIRAMINE MALEATE
     Indication: BACK PAIN
     Dosage: UNK
     Route: 065
  7. PROMETHAZINE [Suspect]
     Active Substance: PROMETHAZINE\PROMETHAZINE HYDROCHLORIDE
     Indication: BACK PAIN
     Dosage: UNK
     Route: 065

REACTIONS (10)
  - Somnolence [Unknown]
  - Asthenia [Unknown]
  - Impaired work ability [Unknown]
  - Muscle rigidity [Unknown]
  - Tongue disorder [Unknown]
  - Gait inability [Unknown]
  - Substance abuse [Unknown]
  - Drug dependence [Unknown]
  - Dizziness [Unknown]
  - Fall [Unknown]
